FAERS Safety Report 8394971-9 (Version None)
Quarter: 2012Q2

REPORT INFORMATION
  Report Type: 
  Country: None (occurrence: None)
  Receive Date: 20120530
  Receipt Date: 20120214
  Transmission Date: 20120825
  Serious: No
  Sender: FDA-Public Use
  Company Number: US-GLAXOSMITHKLINE-A0966870A

PATIENT
  Age: 61 Year
  Sex: Female
  Weight: 72.6 kg

DRUGS (5)
  1. FLOLAN [Suspect]
     Indication: PULMONARY EMBOLISM
     Dosage: 22NGKM UNKNOWN
     Route: 042
     Dates: start: 20091215
  2. REVATIO [Concomitant]
     Dosage: 20MG THREE TIMES PER DAY
  3. COUMADIN [Concomitant]
  4. AMIODARONE HYDROCHLORIDE [Concomitant]
  5. METOPROLOL TARTRATE [Concomitant]

REACTIONS (1)
  - CATHETER SITE INFECTION [None]
